FAERS Safety Report 6243709-X (Version None)
Quarter: 2009Q2

REPORT INFORMATION
  Report Type: 
  Country: None (occurrence: None)
  Receive Date: 20090624
  Receipt Date: 20090612
  Transmission Date: 20091009
  Serious: Yes (Death)
  Sender: FDA-Public Use
  Company Number: JP-PFIZER INC-2009213037

PATIENT
  Age: 60 Year

DRUGS (6)
  1. SUNITINIB MALATE [Suspect]
     Indication: RENAL CELL CARCINOMA
     Dosage: 37.5 MG, 1X/DAY
     Route: 048
     Dates: start: 20090127, end: 20090406
  2. LASIX [Concomitant]
     Route: 048
  3. FLUITRAN [Concomitant]
     Route: 048
  4. TAKEPRON [Concomitant]
     Route: 048
  5. LOXONIN [Concomitant]
     Route: 048
  6. ZOMETA [Concomitant]
     Route: 042

REACTIONS (2)
  - DISEASE PROGRESSION [None]
  - RENAL CELL CARCINOMA [None]
